FAERS Safety Report 11810291 (Version 2)
Quarter: 2015Q4

REPORT INFORMATION
  Report Type: Report from Study
  Country: CO (occurrence: CO)
  Receive Date: 20151208
  Receipt Date: 20151221
  Transmission Date: 20160305
  Serious: Yes (Other)
  Sender: FDA-Public Use
  Company Number: CO-ABBVIE-15K-036-1514663-00

PATIENT
  Age: 62 Year
  Sex: Female
  Weight: 93 kg

DRUGS (1)
  1. HUMIRA [Suspect]
     Active Substance: ADALIMUMAB
     Indication: PSORIASIS
     Route: 058
     Dates: start: 20131210

REACTIONS (2)
  - Dermatitis [Recovered/Resolved]
  - Flavivirus infection [Recovered/Resolved]

NARRATIVE: CASE EVENT DATE: 20151129
